FAERS Safety Report 14188937 (Version 1)
Quarter: 2017Q4

REPORT INFORMATION
  Report Type: Report from Study
  Country: None (occurrence: US)
  Receive Date: 20171115
  Receipt Date: 20171115
  Transmission Date: 20180321
  Serious: Yes (Hospitalization)
  Sender: FDA-Public Use
  Company Number: US-ABBVIE-16K-163-1773621-00

PATIENT
  Age: 42 Year
  Sex: Female
  Weight: 82.63 kg

DRUGS (1)
  1. HUMIRA [Suspect]
     Active Substance: ADALIMUMAB
     Indication: CROHN^S DISEASE
     Route: 058
     Dates: start: 2016

REACTIONS (5)
  - Exposure during pregnancy [Unknown]
  - Pre-eclampsia [Recovered/Resolved]
  - Live birth [Unknown]
  - Hypertension [Unknown]
  - Premature delivery [Unknown]

NARRATIVE: CASE EVENT DATE: 20161222
